FAERS Safety Report 7644897-0 (Version None)
Quarter: 2011Q3

REPORT INFORMATION
  Report Type: 
  Country: None (occurrence: None)
  Receive Date: 20110729
  Receipt Date: 20110720
  Transmission Date: 20111222
  Serious: Yes (Hospitalization)
  Sender: FDA-Public Use
  Company Number: DE-ALLERGAN-1109808US

PATIENT
  Sex: Female

DRUGS (2)
  1. OZURDEX [Suspect]
     Indication: MACULAR OEDEMA
     Dosage: UNK
     Dates: start: 20110501, end: 20110501
  2. OZURDEX [Suspect]
     Indication: RETINAL VEIN OCCLUSION

REACTIONS (2)
  - OCULAR HYPERTENSION [None]
  - VOMITING [None]
